FAERS Safety Report 8350974-1 (Version None)
Quarter: 2012Q2

REPORT INFORMATION
  Report Type: 
  Country: None (occurrence: None)
  Receive Date: 20120510
  Receipt Date: 20120501
  Transmission Date: 20120825
  Serious: Yes (Hospitalization)
  Sender: FDA-Public Use
  Company Number: US-VERTEX PHARMACEUTICALS INC.-AE-2012-006371

PATIENT
  Sex: Male

DRUGS (3)
  1. INCIVEK [Suspect]
     Indication: HEPATITIS C
     Dates: start: 20111104, end: 20120127
  2. PEGASYS [Concomitant]
     Indication: HEPATITIS C
     Dates: start: 20111104, end: 20120430
  3. RIBAVIRIN [Concomitant]
     Indication: HEPATITIS C
     Dates: start: 20111104, end: 20120430

REACTIONS (4)
  - CEREBROVASCULAR ACCIDENT [None]
  - MUSCLE SPASMS [None]
  - CLUMSINESS [None]
  - DYSARTHRIA [None]
